FAERS Safety Report 5235930-4 (Version None)
Quarter: 2007Q1

REPORT INFORMATION
  Report Type: 
  Country: None (occurrence: None)
  Receive Date: 20070212
  Receipt Date: 20070206
  Transmission Date: 20070707
  Serious: Yes (Death, Other)
  Sender: FDA-Public Use
  Company Number: PHBS2007JP01970

PATIENT
  Age: 49 Year
  Sex: Male

DRUGS (18)
  1. ACLARUBICIN [Concomitant]
  2. NEUPOGEN [Concomitant]
  3. ETOPOSIDE [Concomitant]
  4. DAUNORUBICIN HYDROCHLORIDE [Concomitant]
  5. CYTOSINE ARABINOSIDE [Concomitant]
  6. MITOXANTRONE [Concomitant]
  7. NEORAL [Suspect]
     Indication: BONE MARROW TRANSPLANT
     Dosage: UNK, UNK
     Route: 065
     Dates: start: 19930101, end: 19930801
  8. NEORAL [Suspect]
     Dosage: 100 MG/D
     Route: 065
     Dates: start: 20000101
  9. NEORAL [Suspect]
     Dosage: 100 MG/D
     Route: 065
     Dates: start: 20020301
  10. NEORAL [Suspect]
     Dosage: 25 MG/D
     Route: 065
     Dates: end: 20041201
  11. BUSULFAN [Concomitant]
     Indication: BONE MARROW TRANSPLANT
  12. CYCLOPHOSPHAMIDE [Concomitant]
     Indication: BONE MARROW TRANSPLANT
  13. METHOTREXATE [Concomitant]
     Indication: BONE MARROW TRANSPLANT
  14. PREDNISOLONE [Concomitant]
     Dosage: 1 MG/KG./D
     Route: 065
  15. PREDNISOLONE [Concomitant]
     Dosage: 1 MG/KG/D
     Route: 065
     Dates: start: 20000101
  16. PREDNISOLONE [Concomitant]
     Dosage: 5 MG/D
  17. PREDNISOLONE [Concomitant]
     Dosage: 1 MG/KG/D
     Route: 065
     Dates: start: 20020301, end: 20041201
  18. ARA-C [Concomitant]

REACTIONS (18)
  - ACUTE GRAFT VERSUS HOST DISEASE IN SKIN [None]
  - ACUTE MYELOID LEUKAEMIA RECURRENT [None]
  - ATROPHY [None]
  - B-LYMPHOCYTE ABNORMALITIES [None]
  - BONE MARROW MYELOGRAM ABNORMAL [None]
  - CEREBRAL HAEMORRHAGE [None]
  - EPSTEIN-BARR VIRUS INFECTION [None]
  - GLOMERULONEPHRITIS MEMBRANOUS [None]
  - LEUKOPLAKIA [None]
  - LYMPHOPROLIFERATIVE DISORDER [None]
  - MUCOSAL ULCERATION [None]
  - MUCOUS MEMBRANE DISORDER [None]
  - MYELOBLAST COUNT INCREASED [None]
  - NEPHRITIC SYNDROME [None]
  - ORAL PAIN [None]
  - PANCYTOPENIA [None]
  - PYREXIA [None]
  - WEIGHT DECREASED [None]
